FAERS Safety Report 4848176-6 (Version None)
Quarter: 2005Q4

REPORT INFORMATION
  Report Type: 
  Country: None (occurrence: None)
  Receive Date: 20051116
  Receipt Date: 20050808
  Transmission Date: 20060501
  Serious: Yes (Hospitalization)
  Sender: FDA-Public Use
  Company Number: PHEH2005US05401

PATIENT
  Age: 74 Year
  Sex: Male

DRUGS (4)
  1. GLEEVEC [Suspect]
     Indication: GASTROINTESTINAL STROMAL TUMOUR
     Dosage: 400 MG, QD, ORAL; 600 MG, QD, ORAL
     Route: 048
     Dates: start: 20050501, end: 20050501
  2. HEPARIN [Concomitant]
  3. AMIODARONE HCL [Concomitant]
  4. BETA BLOCKING AGENTS (NO INGREDIENTS/SUBSTANCES) [Concomitant]

REACTIONS (4)
  - BLOOD CREATININE INCREASED [None]
  - FLUID RETENTION [None]
  - HAEMATURIA [None]
  - RENAL FAILURE [None]
